FAERS Safety Report 4315092-8 (Version None)
Quarter: 2004Q1

REPORT INFORMATION
  Report Type: 
  Country: None (occurrence: None)
  Receive Date: 20040310
  Receipt Date: 20040303
  Transmission Date: 20041129
  Serious: Yes (Hospitalization)
  Sender: FDA-Public Use
  Company Number: FR-ROCHE-360496

PATIENT
  Age: 40 Year
  Sex: Male

DRUGS (6)
  1. RIVOTRIL [Suspect]
     Route: 048
     Dates: start: 20031021, end: 20031021
  2. RIVOTRIL [Suspect]
     Route: 048
  3. SERESTA [Suspect]
     Indication: DRUG USE FOR UNKNOWN INDICATION
     Route: 048
     Dates: start: 20031021, end: 20031021
  4. DEPAKOTE [Suspect]
     Route: 048
     Dates: start: 20031021, end: 20031021
  5. DEPAKOTE [Suspect]
     Route: 048
  6. ZYPREXA [Concomitant]
     Route: 048
     Dates: start: 20031021, end: 20031021

REACTIONS (3)
  - OVERDOSE [None]
  - SUICIDE ATTEMPT [None]
  - THROMBOCYTOPENIA [None]
